FAERS Safety Report 4628050-0 (Version None)
Quarter: 2005Q2

REPORT INFORMATION
  Report Type: 
  Country: None (occurrence: None)
  Receive Date: 20050405
  Receipt Date: 20050405
  Transmission Date: 20051028
  Serious: No
  Sender: FDA-Public Use
  Company Number: None

PATIENT
  Age: 66 Year
  Sex: Female
  Weight: 43.9989 kg

DRUGS (9)
  1. REMICADE [Suspect]
     Indication: RHEUMATOID ARTHRITIS
     Dosage: 135 MG IV
     Route: 042
     Dates: start: 20050218
  2. REMICADE [Suspect]
     Indication: RHEUMATOID ARTHRITIS
     Dosage: 135 MG IV
     Route: 042
     Dates: start: 20050304
  3. PREDNISONE [Concomitant]
  4. PERCOCET [Concomitant]
  5. MIACALCIN [Concomitant]
  6. VITAMINS [Concomitant]
  7. IRON [Concomitant]
  8. DURAGESIC PATCHES [Concomitant]
  9. FOLIC ACID [Concomitant]

REACTIONS (4)
  - ABDOMINAL PAIN [None]
  - BACK PAIN [None]
  - NAUSEA [None]
  - PALPITATIONS [None]
